FAERS Safety Report 9224297 (Version 1)
Quarter: 2013Q1

REPORT INFORMATION
  Report Type: Spontaneous
  Country: US (occurrence: US)
  Receive Date: 20120914
  Receipt Date: 20120914
  Transmission Date: 20140127
  Serious: Yes (Other)
  Sender: FDA-Public Use
  Company Number: JPI-P-022289

PATIENT
  Age: 59 Year
  Sex: Male

DRUGS (1)
  1. XYREM (500 MG/ML SOLUTION)(SODIUM OXYBATE) [Suspect]
     Indication: INSOMNIA
     Dosage: 2 DOSES OF 3.75 GM TAKEN NIGHTLY/AT BEDTIME.
     Route: 048
     Dates: start: 20060929

REACTIONS (2)
  - Drug dependence [None]
  - Therapeutic response decreased [None]
